FAERS Safety Report 7508821 (Version 3)
Quarter: 2017Q3

REPORT INFORMATION
  Report Type: Spontaneous
  Country: US (occurrence: US)
  Receive Date: 20100729
  Receipt Date: 20170925
  Transmission Date: 20171128
  Serious: Yes (Hospitalization, Other)
  Sender: FDA-Public Use
  Company Number: US-PFIZER INC-2007054947

PATIENT
  Age: 46 Year
  Sex: Female
  Weight: 68 kg

DRUGS (3)
  1. VIOXX [Suspect]
     Active Substance: ROFECOXIB
     Indication: ARTHRITIS
     Dosage: 12.5 MG, 1X/DAY
     Dates: start: 20010913
  2. VIOXX [Suspect]
     Active Substance: ROFECOXIB
     Dosage: 25 MG, 1X/DAY
     Dates: end: 20030511
  3. CELEBREX [Suspect]
     Active Substance: CELECOXIB
     Indication: ARTHRITIS
     Dosage: 200 MG, 1X/DAY
     Dates: start: 20000601, end: 200106

REACTIONS (2)
  - Ischaemic stroke [Unknown]
  - Depression [Unknown]

NARRATIVE: CASE EVENT DATE: 20010621
